FAERS Safety Report 12812676 (Version 1)
Quarter: 2016Q4

REPORT INFORMATION
  Report Type: Spontaneous
  Country: US (occurrence: US)
  Receive Date: 20161005
  Receipt Date: 20161005
  Transmission Date: 20170207
  Serious: No
  Sender: FDA-Public Use
  Company Number: US-ENDO PHARMACEUTICALS INC.-2015-004819

PATIENT
  Age: 66 Year
  Sex: Female

DRUGS (6)
  1. CORGARD [Concomitant]
     Active Substance: NADOLOL
     Indication: MITRAL VALVE PROLAPSE
  2. SYNTHROID [Concomitant]
     Active Substance: LEVOTHYROXINE SODIUM
     Indication: PRODUCT USED FOR UNKNOWN INDICATION
  3. PREDNISONE TABLETS [Concomitant]
     Active Substance: PREDNISONE
     Indication: INTERVERTEBRAL DISC PROTRUSION
  4. PREDNISONE TABLETS [Concomitant]
     Active Substance: PREDNISONE
     Indication: SPINAL COLUMN STENOSIS
  5. PREVACID [Concomitant]
     Active Substance: LANSOPRAZOLE
     Indication: GASTROOESOPHAGEAL REFLUX DISEASE
  6. CARISOPRODOL TABLETS 350MG [Suspect]
     Active Substance: CARISOPRODOL
     Indication: SPINAL DISORDER
     Route: 065

REACTIONS (1)
  - Abdominal pain upper [Not Recovered/Not Resolved]

NARRATIVE: CASE EVENT DATE: 201506
